FAERS Safety Report 14093119 (Version 5)
Quarter: 2017Q4

REPORT INFORMATION
  Report Type: Report from Study
  Country: US (occurrence: US)
  Receive Date: 20171016
  Receipt Date: 20171214
  Transmission Date: 20180321
  Serious: Yes (Hospitalization)
  Sender: FDA-Public Use
  Company Number: US-CORCEPT THERAPEUTICS INC.-US-2017CRT000802

PATIENT
  Age: 52 Year
  Sex: Female
  Weight: 71.9 kg

DRUGS (4)
  1. RIFAMPIN. [Suspect]
     Active Substance: RIFAMPIN
     Indication: DRUG INTERACTION
     Dosage: 600 MG, QD
     Route: 048
     Dates: start: 20170905, end: 20170906
  2. KORLYM [Suspect]
     Active Substance: MIFEPRISTONE
     Dosage: 1500 MG, SINGLE DOSES
     Route: 048
     Dates: start: 20170929, end: 20170929
  3. KORLYM [Suspect]
     Active Substance: MIFEPRISTONE
     Indication: DRUG INTERACTION
     Dosage: 1500 MG, SINGLE DOSES
     Route: 048
     Dates: start: 20170818, end: 20170818
  4. RIFAMPIN. [Suspect]
     Active Substance: RIFAMPIN
     Dosage: 600 MG, QD
     Route: 048
     Dates: start: 20170915, end: 20170928

REACTIONS (1)
  - Abdominal pain [Recovered/Resolved]

NARRATIVE: CASE EVENT DATE: 20170930
